FAERS Safety Report 23965607 (Version 1)
Quarter: 2024Q2

REPORT INFORMATION
  Report Type: Report from Study
  Country: BR (occurrence: BR)
  Receive Date: 20240612
  Receipt Date: 20240612
  Transmission Date: 20240716
  Serious: Yes (Other)
  Sender: FDA-Public Use
  Company Number: BR-TAKEDA-2021TUS009580

PATIENT
  Age: 12 Year
  Sex: Male

DRUGS (6)
  1. HEMO-8R [Suspect]
     Active Substance: ANTIHEMOPHILIC FACTOR, HUMAN RECOMBINANT
     Indication: Factor VIII deficiency
     Dosage: 1.25 INTERNATIONAL UNIT, 3/WEEK
     Route: 065
  2. HEMO-8R [Suspect]
     Active Substance: ANTIHEMOPHILIC FACTOR, HUMAN RECOMBINANT
     Dosage: UNK
     Route: 042
  3. PREDNISOLONE [Concomitant]
     Active Substance: PREDNISOLONE
     Indication: Influenza
     Dosage: UNK
     Dates: start: 202102
  4. BUDESONIDE [Concomitant]
     Active Substance: BUDESONIDE
     Indication: Influenza
     Dosage: UNK
     Dates: start: 202102
  5. RINOSORO [Concomitant]
     Indication: Nasal irrigation
     Dosage: UNK
     Dates: start: 202102
  6. AMOXICILLIN\CLAVULANIC ACID [Concomitant]
     Active Substance: AMOXICILLIN\CLAVULANIC ACID
     Indication: Sinusitis
     Dosage: UNK
     Dates: start: 202102

REACTIONS (8)
  - Syncope [Recovered/Resolved]
  - Anti factor VIII antibody negative [Unknown]
  - Dengue fever [Recovered/Resolved]
  - Blood glucose decreased [Recovered/Resolved]
  - Influenza [Recovering/Resolving]
  - Oropharyngeal pain [Recovering/Resolving]
  - Sinusitis [Recovering/Resolving]
  - Rhinalgia [Recovering/Resolving]

NARRATIVE: CASE EVENT DATE: 20210131
